FAERS Safety Report 23658577 (Version 1)
Quarter: 2024Q1

REPORT INFORMATION
  Report Type: Spontaneous
  Country: ES (occurrence: None)
  Receive Date: 20240321
  Receipt Date: 20240321
  Transmission Date: 20240409
  Serious: Yes (Death)
  Sender: FDA-Public Use
  Company Number: None

PATIENT
  Age: 58 Year
  Sex: Male

DRUGS (5)
  1. VISMODEGIB [Suspect]
     Active Substance: VISMODEGIB
     Indication: Basal cell carcinoma
     Route: 065
     Dates: start: 20231219
  2. ACETAMINOPHEN [Concomitant]
     Active Substance: ACETAMINOPHEN
     Indication: Basal cell carcinoma
     Dosage: 1.0 G DECOCE
     Dates: start: 20230719
  3. PREGABALIN [Concomitant]
     Active Substance: PREGABALIN
     Indication: Basal cell carcinoma
     Dosage: 150.0 MG DECE
     Dates: start: 20230719
  4. FENTANYL [Concomitant]
     Active Substance: FENTANYL\FENTANYL CITRATE
     Indication: Basal cell carcinoma
     Dosage: 1.0 PARCHE C/72 HORAS
     Dates: start: 20230719
  5. PALIPERIDONE PALMITATE [Concomitant]
     Active Substance: PALIPERIDONE PALMITATE
     Indication: Basal cell carcinoma
     Dates: start: 20230915

REACTIONS (1)
  - Pneumonia [Fatal]

NARRATIVE: CASE EVENT DATE: 20240207
